FAERS Safety Report 4562517-9 (Version None)
Quarter: 2005Q1

REPORT INFORMATION
  Report Type: 
  Country: None (occurrence: None)
  Receive Date: 20050124
  Receipt Date: 20050110
  Transmission Date: 20050727
  Serious: Yes (Death, Life-Threatening, Hospitalization, Other)
  Sender: FDA-Public Use
  Company Number: 16141

PATIENT
  Age: 64 Year
  Sex: Male
  Weight: 84.369 kg

DRUGS (1)
  1. DAUNORUBICIN HCL [Suspect]
     Indication: ACUTE MYELOID LEUKAEMIA
     Dosage: 45 MG/M2 OTHER
     Dates: start: 20041115

REACTIONS (3)
  - HAEMORRHAGE [None]
  - INFECTION [None]
  - NEUTROPENIA [None]
